FAERS Safety Report 7858647-6 (Version None)
Quarter: 2011Q4

REPORT INFORMATION
  Report Type: 
  Country: None (occurrence: None)
  Receive Date: 20111027
  Receipt Date: 20110125
  Transmission Date: 20120403
  Serious: Yes (Other)
  Sender: FDA-Public Use
  Company Number: JP-BAYER-2011-008913

PATIENT
  Sex: Male
  Weight: 65 kg

DRUGS (9)
  1. BASEN [Concomitant]
     Dosage: DAILY DOSE .9 MG
     Route: 048
  2. HUMALOG [Concomitant]
     Dosage: DAILY DOSE 24 U
     Route: 058
  3. NEXAVAR [Suspect]
     Dosage: 400 MG, QD
     Dates: start: 20100323
  4. GLAKAY [Concomitant]
     Indication: OSTEOPOROSIS
     Dosage: DAILY DOSE 45 MG
     Route: 048
  5. NEXAVAR [Suspect]
     Indication: HEPATIC NEOPLASM MALIGNANT
     Dosage: 800 MG, QD
     Route: 048
     Dates: start: 20091202, end: 20091211
  6. NEXAVAR [Suspect]
     Dosage: 400 MG, QD
     Dates: start: 20091212, end: 20100302
  7. LIVACT [Concomitant]
     Dosage: DAILY DOSE 3 DF
     Route: 048
     Dates: start: 20091110
  8. URSO 250 [Concomitant]
     Dosage: DAILY DOSE 600 MG
     Route: 048
  9. NIRENA [Concomitant]
     Dosage: DAILY DOSE 40 MG
     Route: 048

REACTIONS (3)
  - HYPERTENSION [None]
  - HEPATIC FUNCTION ABNORMAL [None]
  - PALMAR-PLANTAR ERYTHRODYSAESTHESIA SYNDROME [None]
